FAERS Safety Report 6590450-X (Version None)
Quarter: 2010Q1

REPORT INFORMATION
  Report Type: 
  Country: None (occurrence: None)
  Receive Date: 20100219
  Receipt Date: 20100208
  Transmission Date: 20100710
  Serious: Yes (Other)
  Sender: FDA-Public Use
  Company Number: US-ROCHE-685204

PATIENT
  Age: 72 Year
  Sex: Female
  Weight: 77.3 kg

DRUGS (8)
  1. BONIVA [Suspect]
     Indication: OSTEOPOROSIS
     Route: 048
     Dates: start: 20060101
  2. MOBIC [Concomitant]
  3. TRAMADOL [Concomitant]
  4. CELEBREX [Concomitant]
  5. PREVACID [Concomitant]
  6. DARVOCET [Concomitant]
  7. FISH OIL [Concomitant]
  8. ZYRTEC-D 12 HOUR [Concomitant]

REACTIONS (3)
  - FEMUR FRACTURE [None]
  - HIP ARTHROPLASTY [None]
  - OSTEOPOROSIS [None]
